FAERS Safety Report 23351006 (Version 1)
Quarter: 2023Q4

REPORT INFORMATION
  Report Type: Spontaneous
  Country: US (occurrence: US)
  Receive Date: 20231229
  Receipt Date: 20231229
  Transmission Date: 20240110
  Serious: Yes (Other)
  Sender: FDA-Public Use
  Company Number: US-BRISTOL-MYERS SQUIBB COMPANY-2023-187369

PATIENT
  Sex: Male

DRUGS (2)
  1. CAMZYOS [Suspect]
     Active Substance: MAVACAMTEN
     Indication: Hypertrophic cardiomyopathy
     Dosage: DOSE : UNK;     FREQ : UNK
  2. CAMZYOS [Suspect]
     Active Substance: MAVACAMTEN
     Route: 048

REACTIONS (2)
  - Fall [Unknown]
  - Jaw fracture [Unknown]

NARRATIVE: CASE EVENT DATE: 20231201
